FAERS Safety Report 13802628 (Version 1)
Quarter: 2017Q3

REPORT INFORMATION
  Report Type: Spontaneous
  Country: US (occurrence: US)
  Receive Date: 20170727
  Receipt Date: 20170727
  Transmission Date: 20171127
  Serious: Yes (Hospitalization)
  Sender: FDA-Public Use
  Company Number: None

PATIENT
  Age: 41 Year
  Sex: Male
  Weight: 119.2 kg

DRUGS (2)
  1. DAPTOMYCIN. [Suspect]
     Active Substance: DAPTOMYCIN
     Indication: ARTHRITIS INFECTIVE
     Route: 042
     Dates: start: 20170311, end: 20170323
  2. TEFLARO [Suspect]
     Active Substance: CEFTAROLINE FOSAMIL
     Indication: ARTHRITIS INFECTIVE
     Route: 042
     Dates: start: 20170325, end: 20170501

REACTIONS (9)
  - Photophobia [None]
  - Seizure [None]
  - Chills [None]
  - Headache [None]
  - Myalgia [None]
  - Rash [None]
  - Pyrexia [None]
  - Tachycardia [None]
  - Transaminases increased [None]

NARRATIVE: CASE EVENT DATE: 20170324
